FAERS Safety Report 6658770-8 (Version None)
Quarter: 2010Q2

REPORT INFORMATION
  Report Type: 
  Country: None (occurrence: None)
  Receive Date: 20100325
  Receipt Date: 20100310
  Transmission Date: 20101027
  Serious: Yes (Hospitalization)
  Sender: FDA-Public Use
  Company Number: 2010030033

PATIENT
  Age: 78 Year
  Sex: Male

DRUGS (7)
  1. TORSEMIDE [Suspect]
     Dosage: 20 MG, PER DAY
  2. RAMIPRIL [Suspect]
     Dosage: 10 MG (5MG, 2 IN 1 D)
  3. DIGOXIN [Suspect]
     Dosage: (0.125 MG, PER DAY)
  4. STATINS [Concomitant]
  5. PLATELET INHIBITORS [Suspect]
  6. . [Concomitant]
  7. . [Concomitant]

REACTIONS (15)
  - ACUTE PRERENAL FAILURE [None]
  - ATRIOVENTRICULAR BLOCK COMPLETE [None]
  - BRADYCARDIA [None]
  - BUNDLE BRANCH BLOCK RIGHT [None]
  - CARDIAC ARREST [None]
  - ELECTROCARDIOGRAM POOR R-WAVE PROGRESSION [None]
  - HYPERKALAEMIA [None]
  - NOCTURNAL DYSPNOEA [None]
  - OEDEMA PERIPHERAL [None]
  - QRS AXIS ABNORMAL [None]
  - SINUS TACHYCARDIA [None]
  - SYNCOPE [None]
  - URINARY INCONTINENCE [None]
  - VENOUS PRESSURE JUGULAR INCREASED [None]
  - VENTRICULAR TACHYCARDIA [None]
